FAERS Safety Report 13716891 (Version 1)
Quarter: 2017Q3

REPORT INFORMATION
  Report Type: Spontaneous
  Country: US (occurrence: US)
  Receive Date: 20170703
  Receipt Date: 20170703
  Transmission Date: 20171127
  Serious: No
  Sender: FDA-Public Use
  Company Number: None

PATIENT
  Age: 11 Year
  Sex: Male
  Weight: 38.25 kg

DRUGS (1)
  1. INTRALIPID [Suspect]
     Active Substance: EGG PHOSPHOLIPIDS\GLYCERIN\SOYBEAN OIL
     Indication: MALNUTRITION
     Dosage: ?          OTHER DOSE:ML;?
     Route: 042

REACTIONS (2)
  - Device issue [None]
  - Product contamination physical [None]

NARRATIVE: CASE EVENT DATE: 20170630
